FAERS Safety Report 8127916-7 (Version None)
Quarter: 2012Q1

REPORT INFORMATION
  Report Type: 
  Country: None (occurrence: None)
  Receive Date: 20120210
  Receipt Date: 20120208
  Transmission Date: 20120608
  Serious: Yes (Other)
  Sender: FDA-Public Use
  Company Number: CA-AMGEN-CANSP2012004158

PATIENT
  Age: 34 Year
  Sex: Female

DRUGS (6)
  1. CLOVEX [Concomitant]
  2. ESCITALOPRAM [Concomitant]
     Indication: BIPOLAR II DISORDER
     Dosage: 20 MG, QD
     Route: 048
  3. SEROQUEL [Concomitant]
     Indication: BIPOLAR II DISORDER
     Dosage: 100 MG, QD
     Route: 048
  4. ENBREL [Suspect]
     Indication: PSORIASIS
     Dosage: 50 MG, 2 TIMES/WK
     Route: 058
     Dates: start: 20100525, end: 20120116
  5. CLONAZEPAM [Concomitant]
     Indication: BIPOLAR II DISORDER
     Dosage: 0.5 UNK, QD
     Route: 048
  6. FEROQUEL [Concomitant]
     Dosage: 300 MG, QD

REACTIONS (9)
  - SYPHILIS [None]
  - NIGHT SWEATS [None]
  - RASH [None]
  - CHEST PAIN [None]
  - RASH PAPULAR [None]
  - WEIGHT INCREASED [None]
  - LUNG INFILTRATION [None]
  - DYSPNOEA [None]
  - COUGH [None]
